FAERS Safety Report 16077153 (Version 1)
Quarter: 2019Q1

REPORT INFORMATION
  Report Type: Report from Study
  Country: JP (occurrence: JP)
  Receive Date: 20190315
  Receipt Date: 20190315
  Transmission Date: 20190418
  Serious: Yes (Other)
  Sender: FDA-Public Use
  Company Number: JP-BRISTOL-MYERS SQUIBB COMPANY-BMS-2017-074699

PATIENT
  Age: 69 Year
  Sex: Male
  Weight: 52 kg

DRUGS (1)
  1. NIVOLUMAB [Suspect]
     Active Substance: NIVOLUMAB
     Indication: METASTATIC RENAL CELL CARCINOMA
     Dosage: 3 MILLIGRAM/KILOGRAM, Q2WK
     Route: 041
     Dates: start: 20161027, end: 20171109

REACTIONS (6)
  - Primary hypothyroidism [Recovering/Resolving]
  - Primary hyperthyroidism [Recovering/Resolving]
  - Silent thyroiditis [Recovering/Resolving]
  - Adrenal insufficiency [Recovering/Resolving]
  - Autoimmune thyroiditis [Unknown]
  - Hypophysitis [Recovering/Resolving]

NARRATIVE: CASE EVENT DATE: 20170316
